FAERS Safety Report 24305257 (Version 4)
Quarter: 2025Q1

REPORT INFORMATION
  Report Type: Spontaneous
  Country: CO (occurrence: CO)
  Receive Date: 20240911
  Receipt Date: 20250218
  Transmission Date: 20250409
  Serious: Yes (Hospitalization, Other)
  Sender: SANDOZ
  Company Number: CO-002147023-NVSC2021CO143317

PATIENT
  Sex: Male
  Weight: 52 kg

DRUGS (14)
  1. TAMSULOSIN [Suspect]
     Active Substance: TAMSULOSIN
     Indication: Prostatitis
     Dosage: 0.4 MG, QD
     Route: 048
  2. XOLAIR [Suspect]
     Active Substance: OMALIZUMAB
     Indication: Asthma
     Dosage: 150 MG, QMO
     Route: 058
  3. XOLAIR [Suspect]
     Active Substance: OMALIZUMAB
     Dosage: 150 MG, Q2W
     Route: 058
     Dates: start: 20210729
  4. XOLAIR [Suspect]
     Active Substance: OMALIZUMAB
     Route: 058
  5. XOLAIR [Suspect]
     Active Substance: OMALIZUMAB
     Route: 058
  6. XOLAIR [Suspect]
     Active Substance: OMALIZUMAB
     Dosage: 300 MG, QMO
     Route: 058
  7. XOLAIR [Suspect]
     Active Substance: OMALIZUMAB
     Dosage: 300 MG, BIW
     Route: 058
  8. XOLAIR [Suspect]
     Active Substance: OMALIZUMAB
     Route: 065
     Dates: start: 20211109
  9. ENTRESTO [Concomitant]
     Active Substance: SACUBITRIL\VALSARTAN
     Dosage: 50 MG, QD
     Route: 048
  10. ENTRESTO [Concomitant]
     Active Substance: SACUBITRIL\VALSARTAN
     Indication: Cardiac disorder
     Dosage: 50 MG, Q12H
     Route: 048
  11. INSULIN NOS [Concomitant]
     Active Substance: INSULIN NOS
     Indication: Diabetes mellitus
     Dosage: UNK, Q12H
     Route: 058
  12. LINAGLIPTIN [Concomitant]
     Active Substance: LINAGLIPTIN
     Indication: Diabetes mellitus
     Route: 048
  13. LINAGLIPTIN\METFORMIN HYDROCHLORIDE [Concomitant]
     Active Substance: LINAGLIPTIN\METFORMIN HYDROCHLORIDE
     Indication: Diabetes mellitus
     Dosage: UNK, QD
     Route: 048
  14. VALSARTAN [Concomitant]
     Active Substance: VALSARTAN
     Indication: Product used for unknown indication
     Dosage: 150 MG, QMO
     Route: 065

REACTIONS (14)
  - Asthma [Unknown]
  - Malaise [Unknown]
  - Asthmatic crisis [Unknown]
  - Choking sensation [Unknown]
  - Cardiac failure [Unknown]
  - Illness [Unknown]
  - Stress [Unknown]
  - Cardiomegaly [Unknown]
  - Chest discomfort [Unknown]
  - Chest discomfort [Unknown]
  - Constipation [Unknown]
  - Cardiac disorder [Unknown]
  - Product dose omission issue [Unknown]
  - Off label use [Unknown]
